FAERS Safety Report 9979514 (Version 2)
Quarter: 2014Q1

REPORT INFORMATION
  Report Type: Spontaneous
  Country: US (occurrence: US)
  Receive Date: 20140306
  Receipt Date: 20140306
  Transmission Date: 20141002
  Serious: Yes (Other)
  Sender: FDA-Public Use
  Company Number: US-ABBVIE-13P-163-1152395-00

PATIENT
  Age: 62 Year
  Sex: Male
  Weight: 74.91 kg

DRUGS (2)
  1. HUMIRA [Suspect]
     Indication: PSORIATIC ARTHROPATHY
     Dates: start: 2003
  2. ATENOLOL [Concomitant]
     Indication: HYPERTENSION

REACTIONS (3)
  - Arthritis [Recovered/Resolved]
  - Procedural pain [Not Recovered/Not Resolved]
  - Incision site pain [Not Recovered/Not Resolved]
